FAERS Safety Report 5005626-2 (Version None)
Quarter: 2006Q2

REPORT INFORMATION
  Report Type: 
  Country: None (occurrence: None)
  Receive Date: 20060515
  Receipt Date: 20060501
  Transmission Date: 20061013
  Serious: Yes (Other)
  Sender: FDA-Public Use
  Company Number: 2006059097

PATIENT
  Sex: Female

DRUGS (5)
  1. LIPITOR [Suspect]
     Indication: ILL-DEFINED DISORDER
  2. MACRODANTIN [Suspect]
     Indication: URINARY TRACT INFECTION
     Dosage: 50 MG (50 MG, 1 IN 1 D), UNKNOWN
  3. AVAPRO [Concomitant]
  4. RABEPRAZOLE SODIUM [Concomitant]
  5. HERBAL NOS/VITAMINS NOS (HERBAL NOS, VITAMINS NOS) [Concomitant]

REACTIONS (2)
  - ANOREXIA [None]
  - HEPATIC CIRRHOSIS [None]
